FAERS Safety Report 4999296-7 (Version None)
Quarter: 2006Q2

REPORT INFORMATION
  Report Type: 
  Country: None (occurrence: None)
  Receive Date: 20060509
  Receipt Date: 20060509
  Transmission Date: 20061013
  Serious: Yes (Disabling)
  Sender: FDA-Public Use
  Company Number: None

PATIENT
  Age: 45 Year
  Sex: Female

DRUGS (21)
  1. TRAMADOL HCL [Suspect]
     Indication: MIGRAINE
     Dosage: 50MG PO TID PRN PAIN
     Route: 048
     Dates: start: 20060220, end: 20060222
  2. TORADOL [Concomitant]
  3. COMPAZINE [Concomitant]
  4. IMITREX [Concomitant]
  5. ULTRAM [Concomitant]
  6. METFORMIN [Concomitant]
  7. ALBUTEROL SULFATE AUTOHALER [Concomitant]
  8. CITALOPRAM HYDROBROMIDE [Concomitant]
  9. METHADONE HCL [Concomitant]
  10. ALPRAZOLAM [Concomitant]
  11. IBUPROFEN [Concomitant]
  12. COLACE [Concomitant]
  13. COMBIVENT [Concomitant]
  14. GLYBURIDE [Concomitant]
  15. HYDROCHLOROTHIAZIDE [Concomitant]
  16. M.V.I. [Concomitant]
  17. OMEPRAZOLE [Concomitant]
  18. OXYBUTYNIN CHLORIDE [Concomitant]
  19. RISPERIDONE [Concomitant]
  20. TOPIRAMATE [Concomitant]
  21. MONTELUKAST [Concomitant]

REACTIONS (2)
  - RASH [None]
  - STRIDOR [None]
